FAERS Safety Report 10063708 (Version 1)
Quarter: 2014Q2

REPORT INFORMATION
  Report Type: Spontaneous
  Country: JP (occurrence: JP)
  Receive Date: 20140407
  Receipt Date: 20140407
  Transmission Date: 20141212
  Serious: Yes (Other)
  Sender: FDA-Public Use
  Company Number: JP-BAUSCH-BL-2014-001743

PATIENT
  Age: 69 Year
  Sex: Male

DRUGS (1)
  1. BRONUCK OPHTHALMIC SOLUTION 0.1% [Suspect]
     Indication: PRODUCT USED FOR UNKNOWN INDICATION
     Route: 047
     Dates: start: 20081021

REACTIONS (1)
  - Diabetic retinopathy [Not Recovered/Not Resolved]
